FAERS Safety Report 11677649 (Version 1)
Quarter: 2015Q4

REPORT INFORMATION
  Report Type: Spontaneous
  Country: CH (occurrence: CH)
  Receive Date: 20151028
  Receipt Date: 20151028
  Transmission Date: 20160304
  Serious: Yes (Hospitalization)
  Sender: FDA-Public Use
  Company Number: CH-ASTRAZENECA-2015SF01993

PATIENT
  Age: 27939 Day
  Sex: Male

DRUGS (32)
  1. SOLU-CORTEF [Concomitant]
     Active Substance: HYDROCORTISONE SODIUM SUCCINATE
     Dates: start: 20150705, end: 20150706
  2. EBRANTIL [Concomitant]
     Active Substance: URAPIDIL
     Dates: start: 20150708, end: 20150711
  3. MYDOCALM [Concomitant]
     Active Substance: TOLPERISONE
  4. CATAPRESSAN [Concomitant]
     Active Substance: CLONIDINE
     Dates: start: 20150715, end: 20150727
  5. CIPROXIN [Suspect]
     Active Substance: CIPROFLOXACIN
     Route: 065
     Dates: start: 20150721, end: 20150804
  6. ZESTRIL [Concomitant]
     Active Substance: LISINOPRIL
     Route: 048
  7. HEPARIN [Concomitant]
     Active Substance: HEPARIN SODIUM
     Route: 041
     Dates: start: 20150705
  8. DIPIPERON [Concomitant]
     Active Substance: PIPAMPERONE
     Dates: start: 20150723, end: 20150723
  9. NORADRENALIN [Concomitant]
     Active Substance: NOREPINEPHRINE\NOREPINEPHRINE BITARTRATE
     Route: 041
     Dates: start: 20150705, end: 20150718
  10. MERONEM [Suspect]
     Active Substance: MEROPENEM
     Route: 040
     Dates: start: 20150711, end: 20150720
  11. MIANSERIN [Concomitant]
     Active Substance: MIANSERIN
     Route: 048
  12. DOLOPHINE HYDROCHLORIDE [Concomitant]
     Active Substance: METHADONE HYDROCHLORIDE
     Route: 048
  13. NEOSTIGMINE [Concomitant]
     Active Substance: NEOSTIGMINE
     Dates: start: 20150707, end: 20150719
  14. PARACETAMOL [Concomitant]
     Active Substance: ACETAMINOPHEN
     Dates: start: 20150720, end: 20150804
  15. NOVALGIN [Concomitant]
     Active Substance: METAMIZOLE SODIUM
     Dates: start: 20150704, end: 20150706
  16. ADRENALIN [Concomitant]
     Active Substance: EPINEPHRINE
     Dates: start: 20150714, end: 20150716
  17. CORDARON [Concomitant]
     Active Substance: AMIODARONE HYDROCHLORIDE
     Dates: start: 20150711, end: 20150718
  18. TEMESTA 2,5 EXPIDET TABLETTEN [Concomitant]
     Dates: start: 20150723
  19. CRESTOR [Concomitant]
     Active Substance: ROSUVASTATIN CALCIUM
     Route: 048
  20. CUBICIN [Suspect]
     Active Substance: DAPTOMYCIN
     Route: 040
     Dates: start: 20150724, end: 20150727
  21. VANCOMYCIN [Suspect]
     Active Substance: VANCOMYCIN
     Route: 040
     Dates: start: 20150704, end: 20150723
  22. DIFLUCAN [Suspect]
     Active Substance: FLUCONAZOLE
     Route: 040
     Dates: start: 20150713, end: 20150720
  23. PARACETAMOL [Concomitant]
     Active Substance: ACETAMINOPHEN
     Dates: start: 20150704, end: 20150706
  24. PANTOZOL [Concomitant]
     Active Substance: PANTOPRAZOLE SODIUM
     Route: 048
     Dates: start: 2015
  25. CONCOR [Concomitant]
     Active Substance: BISOPROLOL FUMARATE
     Route: 048
  26. SUFENTANIL [Concomitant]
     Active Substance: SUFENTANIL
     Dates: start: 20150705, end: 20150804
  27. NALOXONE [Concomitant]
     Active Substance: NALOXONE
     Dates: start: 20150708, end: 20150721
  28. PRADIF T [Concomitant]
     Active Substance: TAMSULOSIN HYDROCHLORIDE
  29. TAZOBAC [Suspect]
     Active Substance: PIPERACILLIN SODIUM\TAZOBACTAM SODIUM
     Route: 042
     Dates: start: 20150704, end: 20150711
  30. ACTRAPID [Concomitant]
     Active Substance: INSULIN HUMAN
  31. CONDROSULF [Concomitant]
     Active Substance: CHONDROITIN SULFATE (CHICKEN)
  32. MARCOUMAR [Concomitant]
     Active Substance: PHENPROCOUMON
     Dosage: MEDICATION UPON ADMISSION

REACTIONS (1)
  - Drug reaction with eosinophilia and systemic symptoms [Recovered/Resolved]

NARRATIVE: CASE EVENT DATE: 20150713
